FAERS Safety Report 7772591-4 (Version None)
Quarter: 2011Q3

REPORT INFORMATION
  Report Type: 
  Country: None (occurrence: None)
  Receive Date: 20110922
  Receipt Date: 20101130
  Transmission Date: 20111222
  Serious: No
  Sender: FDA-Public Use
  Company Number: US-ASTRAZENECA-2010SE56991

PATIENT
  Age: 23 Year
  Sex: Male

DRUGS (5)
  1. NAPROXEN [Concomitant]
  2. SEROQUEL XR [Suspect]
     Indication: BIPOLAR DISORDER
     Route: 048
     Dates: start: 20080101
  3. SEROQUEL XR [Suspect]
     Route: 048
  4. NEXIUM [Concomitant]
     Route: 048
  5. SEROQUEL XR [Suspect]
     Route: 048
     Dates: start: 20080101

REACTIONS (5)
  - UNDERDOSE [None]
  - SOMNOLENCE [None]
  - WRONG TECHNIQUE IN DRUG USAGE PROCESS [None]
  - DISTURBANCE IN ATTENTION [None]
  - MUSCLE TWITCHING [None]
